FAERS Safety Report 8271861-3 (Version None)
Quarter: 2012Q2

REPORT INFORMATION
  Report Type: 
  Country: None (occurrence: None)
  Receive Date: 20120410
  Receipt Date: 20120329
  Transmission Date: 20120825
  Serious: Yes (Other)
  Sender: FDA-Public Use
  Company Number: DK-ROCHE-1042267

PATIENT
  Sex: Female
  Weight: 65 kg

DRUGS (3)
  1. MABTHERA [Suspect]
     Indication: RHEUMATOID ARTHRITIS
     Route: 065
     Dates: start: 20100501
  2. MABTHERA [Suspect]
     Route: 065
     Dates: start: 20120117
  3. MABTHERA [Suspect]
     Route: 065
     Dates: start: 20110601

REACTIONS (3)
  - NEUROLOGICAL SYMPTOM [None]
  - SENSORY DISTURBANCE [None]
  - HEADACHE [None]
